FAERS Safety Report 8067020-X (Version None)
Quarter: 2012Q1

REPORT INFORMATION
  Report Type: 
  Country: None (occurrence: None)
  Receive Date: 20120124
  Receipt Date: 20120119
  Transmission Date: 20120608
  Serious: Yes (Hospitalization, Disabling, Other)
  Sender: FDA-Public Use
  Company Number: IT-MERCK-1108USA01132

PATIENT
  Age: 55 Year
  Sex: Female
  Weight: 86 kg

DRUGS (2)
  1. FOSAMAX [Suspect]
     Indication: OSTEOPENIA
     Route: 048
     Dates: start: 20020502, end: 20050401
  2. FOSAMAX PLUS D [Suspect]
     Indication: OSTEOPENIA
     Route: 048
     Dates: start: 20050914

REACTIONS (54)
  - PARONYCHIA [None]
  - SPINAL OSTEOARTHRITIS [None]
  - EPICONDYLITIS [None]
  - MUSCLE SPASMS [None]
  - DRUG INEFFECTIVE [None]
  - DRUG INTOLERANCE [None]
  - GASTROOESOPHAGEAL REFLUX DISEASE [None]
  - FOOT FRACTURE [None]
  - BARRETT'S OESOPHAGUS [None]
  - FALL [None]
  - DIVERTICULUM [None]
  - FATIGUE [None]
  - HAEMORRHOIDS [None]
  - MENISCUS LESION [None]
  - LOWER LIMB FRACTURE [None]
  - TENOSYNOVITIS [None]
  - MENOPAUSAL SYMPTOMS [None]
  - GASTRODUODENITIS [None]
  - DYSPNOEA [None]
  - GAIT DISTURBANCE [None]
  - BRONCHITIS [None]
  - FOOD ALLERGY [None]
  - ARTHROPATHY [None]
  - HIATUS HERNIA [None]
  - HEADACHE [None]
  - HEAD INJURY [None]
  - WEIGHT INCREASED [None]
  - SKIN LESION [None]
  - PSORIASIS [None]
  - PRURITUS [None]
  - PAIN IN JAW [None]
  - GASTRITIS [None]
  - TENOSYNOVITIS STENOSANS [None]
  - FEMUR FRACTURE [None]
  - FRACTURE MALUNION [None]
  - FRACTURE NONUNION [None]
  - VOMITING [None]
  - OSTEOARTHRITIS [None]
  - OESOPHAGITIS [None]
  - AFFECTIVE DISORDER [None]
  - BONE DISORDER [None]
  - DYSPHAGIA [None]
  - NAUSEA [None]
  - COUGH [None]
  - BONE LOSS [None]
  - ARTHRITIS [None]
  - FIBROCYSTIC BREAST DISEASE [None]
  - OESOPHAGEAL STENOSIS [None]
  - ARTHRALGIA [None]
  - GASTRIC DISORDER [None]
  - DIZZINESS [None]
  - TRANSFUSION [None]
  - TYPE V HYPERLIPIDAEMIA [None]
  - TOOTH FRACTURE [None]
